FAERS Safety Report 6253211-7 (Version None)
Quarter: 2009Q3

REPORT INFORMATION
  Report Type: 
  Country: None (occurrence: None)
  Receive Date: 20090701
  Receipt Date: 20090623
  Transmission Date: 20100115
  Serious: Yes (Other)
  Sender: FDA-Public Use
  Company Number: JP-ABBOTT-09P-087-0582344-00

PATIENT
  Sex: Male
  Weight: 66 kg

DRUGS (2)
  1. SEVOFRAN LIQUID FOR INHALATION [Suspect]
     Indication: ANAESTHESIA
     Dosage: 1%
     Route: 055
     Dates: start: 20090519, end: 20090519
  2. PROPOFOL [Concomitant]
     Indication: ANAESTHESIA
     Route: 042

REACTIONS (1)
  - NODAL RHYTHM [None]
